FAERS Safety Report 11641121 (Version 4)
Quarter: 2016Q2

REPORT INFORMATION
  Report Type: Spontaneous
  Country: US (occurrence: US)
  Receive Date: 20151019
  Receipt Date: 20160422
  Transmission Date: 20160815
  Serious: Yes (Hospitalization, Other)
  Sender: FDA-Public Use
  Company Number: US-ELI_LILLY_AND_COMPANY-US201510003803

PATIENT
  Sex: Female

DRUGS (17)
  1. DILANTIN [Concomitant]
     Active Substance: PHENYTOIN
     Indication: PRODUCT USED FOR UNKNOWN INDICATION
     Dosage: UNK
     Route: 065
  2. DILANTIN [Concomitant]
     Active Substance: PHENYTOIN
     Dosage: UNK
     Route: 042
     Dates: start: 20040608
  3. TEGRETOL [Concomitant]
     Active Substance: CARBAMAZEPINE
     Dosage: 300 MG, EACH EVENING
  4. TEGRETOL [Concomitant]
     Active Substance: CARBAMAZEPINE
     Dosage: 300 MG, SINGLE
  5. TEGRETOL [Concomitant]
     Active Substance: CARBAMAZEPINE
     Dosage: 450 MG, EACH MORNING
  6. DILANTIN [Concomitant]
     Active Substance: PHENYTOIN
     Dosage: 300 MG, BID
  7. XANAX [Concomitant]
     Active Substance: ALPRAZOLAM
     Indication: PRODUCT USED FOR UNKNOWN INDICATION
     Dosage: UNK
     Route: 065
  8. TEGRETOL [Concomitant]
     Active Substance: CARBAMAZEPINE
     Dosage: UNK
     Route: 042
     Dates: start: 20040608
  9. DILANTIN [Concomitant]
     Active Substance: PHENYTOIN
     Dosage: 300 MG, TID
  10. TEGRETOL [Concomitant]
     Active Substance: CARBAMAZEPINE
     Indication: PRODUCT USED FOR UNKNOWN INDICATION
     Dosage: UNK UNK, UNKNOWN
     Route: 065
  11. FERROUS SULFATE. [Concomitant]
     Active Substance: FERROUS SULFATE
     Indication: PRODUCT USED FOR UNKNOWN INDICATION
     Dosage: UNK
     Route: 065
  12. PROZAC [Suspect]
     Active Substance: FLUOXETINE HYDROCHLORIDE
     Indication: POST-TRAUMATIC STRESS DISORDER
     Dosage: 60 MG, QD
     Route: 065
  13. DILANTIN [Concomitant]
     Active Substance: PHENYTOIN
     Dosage: UNK UNK, BID
  14. SYNTHROID [Concomitant]
     Active Substance: LEVOTHYROXINE SODIUM
     Indication: PRODUCT USED FOR UNKNOWN INDICATION
     Dosage: 0.125 MG, QD
     Route: 065
  15. DILANTIN [Concomitant]
     Active Substance: PHENYTOIN
     Dosage: UNK
  16. DILANTIN [Concomitant]
     Active Substance: PHENYTOIN
     Dosage: 400 MG, BID
     Dates: start: 20040608
  17. TEGRETOL [Concomitant]
     Active Substance: CARBAMAZEPINE
     Dosage: 300 MG, BID

REACTIONS (10)
  - Depressed level of consciousness [Recovered/Resolved]
  - Vision blurred [Unknown]
  - Maternal exposure during pregnancy [Recovered/Resolved]
  - Meningitis [Recovered/Resolved]
  - Presyncope [Unknown]
  - Seizure [Unknown]
  - Headache [Unknown]
  - Vomiting [Unknown]
  - Toxicity to various agents [Recovered/Resolved]
  - Nausea [Unknown]
